FAERS Safety Report 12230483 (Version 1)
Quarter: 2016Q2

REPORT INFORMATION
  Report Type: Spontaneous
  Country: US (occurrence: US)
  Receive Date: 20160401
  Receipt Date: 20160401
  Transmission Date: 20160815
  Serious: No
  Sender: FDA-Public Use
  Company Number: US-BAUSCH-BL-2015-021619

PATIENT
  Age: 66 Year
  Sex: Female

DRUGS (2)
  1. IBUPROFEN. [Suspect]
     Active Substance: IBUPROFEN
     Indication: OSTEOARTHRITIS
  2. DICLOFENAC XR [Suspect]
     Active Substance: DICLOFENAC
     Indication: OSTEOARTHRITIS

REACTIONS (2)
  - Product substitution issue [None]
  - Drug ineffective [Unknown]
